FAERS Safety Report 13923500 (Version 1)
Quarter: 2017Q3

REPORT INFORMATION
  Report Type: Spontaneous
  Country: US (occurrence: US)
  Receive Date: 20170830
  Receipt Date: 20170830
  Transmission Date: 20171127
  Serious: Yes (Life-Threatening, Hospitalization)
  Sender: FDA-Public Use
  Company Number: None

PATIENT
  Sex: Female
  Weight: 54.9 kg

DRUGS (7)
  1. MYRBETRIQ [Suspect]
     Active Substance: MIRABEGRON
     Indication: URINARY INCONTINENCE
     Route: 048
     Dates: start: 20161202, end: 20170228
  2. VESICARE [Concomitant]
     Active Substance: SOLIFENACIN SUCCINATE
  3. FIBER CAPSULES [Concomitant]
  4. VITAMIN C [Concomitant]
     Active Substance: ASCORBIC ACID
  5. BIOTIN [Concomitant]
     Active Substance: BIOTIN
  6. BENICAR [Concomitant]
     Active Substance: OLMESARTAN MEDOXOMIL
  7. HEARING AIDS [Concomitant]

REACTIONS (3)
  - Subarachnoid haemorrhage [None]
  - Intracranial aneurysm [None]
  - Reversible cerebral vasoconstriction syndrome [None]

NARRATIVE: CASE EVENT DATE: 20161213
